FAERS Safety Report 7576669-X (Version None)
Quarter: 2011Q2

REPORT INFORMATION
  Report Type: 
  Country: None (occurrence: None)
  Receive Date: 20110624
  Receipt Date: 20110624
  Transmission Date: 20111010
  Serious: Yes (Life-Threatening, Hospitalization)
  Sender: FDA-Public Use
  Company Number: None

PATIENT
  Age: 35 Year
  Sex: Female
  Weight: 71 kg

DRUGS (1)
  1. METFORMIN HCL [Suspect]
     Indication: POLYCYSTIC OVARIES
     Dosage: 1500 MG QHS PO
     Route: 048
     Dates: start: 20100601, end: 20110615

REACTIONS (7)
  - LACTIC ACIDOSIS [None]
  - NAUSEA [None]
  - HYPOTENSION [None]
  - ABDOMINAL PAIN [None]
  - BLOOD CREATININE INCREASED [None]
  - JAUNDICE [None]
  - VOMITING [None]
